FAERS Safety Report 9822124 (Version 1)
Quarter: 2014Q1

REPORT INFORMATION
  Report Type: Report from Study
  Country: US (occurrence: US)
  Receive Date: 20140116
  Receipt Date: 20140116
  Transmission Date: 20141002
  Serious: Yes (Death)
  Sender: FDA-Public Use
  Company Number: US-GLAXOSMITHKLINE-A1056659A

PATIENT
  Age: 49 Year
  Sex: Male
  Weight: 121.4 kg

DRUGS (1)
  1. ZANAMIVIR [Suspect]
     Indication: H1N1 INFLUENZA
     Dosage: 1200MG CUMULATIVE DOSE
     Route: 042

REACTIONS (1)
  - Ventricular tachycardia [Fatal]
